FAERS Safety Report 8785904 (Version 1)
Quarter: 2012Q4

REPORT INFORMATION
  Report Type: Spontaneous
  Country: IL (occurrence: None)
  Receive Date: 20120905
  Receipt Date: 20120905
  Transmission Date: 20130627
  Serious: Yes (Hospitalization)
  Sender: FDA-Public Use
  Company Number: DSA_59097_2012

PATIENT
  Age: 90 Year
  Sex: Female

DRUGS (4)
  1. METRONIDAZOLE (METRONIDAZOLE) [Suspect]
     Indication: PNEUMONIA ASPIRATION
  2. CEFTRIAXONE [Suspect]
     Route: 042
  3. LEVODOPA [Concomitant]
  4. CALCIUM [Concomitant]

REACTIONS (1)
  - Electrocardiogram QT prolonged [None]
